FAERS Safety Report 25152162 (Version 1)
Quarter: 2025Q2

REPORT INFORMATION
  Report Type: Spontaneous
  Country: CN (occurrence: CN)
  Receive Date: 20250402
  Receipt Date: 20250402
  Transmission Date: 20250717
  Serious: Yes (Hospitalization, Other)
  Sender: PFIZER
  Company Number: CN-PFIZER INC-202500061502

PATIENT
  Age: 77 Year
  Sex: Female

DRUGS (2)
  1. PAXLOVID [Suspect]
     Active Substance: NIRMATRELVIR\RITONAVIR
     Indication: COVID-19 treatment
     Route: 048
     Dates: start: 20250319
  2. PAXLOVID [Suspect]
     Active Substance: NIRMATRELVIR\RITONAVIR
     Indication: Lung disorder

REACTIONS (4)
  - Atrial fibrillation [Recovering/Resolving]
  - Heart rate increased [Recovering/Resolving]
  - Cardiac failure [Recovering/Resolving]
  - Off label use [Unknown]
